FAERS Safety Report 10458814 (Version 3)
Quarter: 2014Q4

REPORT INFORMATION
  Report Type: Spontaneous
  Country: DE (occurrence: DE)
  Receive Date: 20140917
  Receipt Date: 20141030
  Transmission Date: 20150528
  Serious: Yes (Other)
  Sender: FDA-Public Use
  Company Number: DE-UCBSA-2014011501

PATIENT
  Age: 0 Year
  Sex: Female
  Weight: 3.74 kg

DRUGS (7)
  1. CIMZIA [Suspect]
     Active Substance: CERTOLIZUMAB PEGOL
     Dosage: FROM 24TH PREGNANCY WEEK
     Route: 064
     Dates: start: 2014, end: 20140727
  2. PREDNISONE. [Concomitant]
     Active Substance: PREDNISONE
     Indication: RHEUMATOID ARTHRITIS
     Dosage: 7.5MG/DAY
     Route: 064
  3. CIMZIA [Suspect]
     Active Substance: CERTOLIZUMAB PEGOL
     Indication: RHEUMATOID ARTHRITIS
     Dosage: 200MG,WITHIN 12TH PREGNANCY WEEK TO WITHIN 18TH PREGNANCY WEEK
     Route: 064
     Dates: end: 2014
  4. CIMZIA [Suspect]
     Active Substance: CERTOLIZUMAB PEGOL
     Dosage: 200 MG, EV 2 WEEKS(QOW)
     Route: 063
     Dates: start: 2014
  5. PREDNISONE. [Concomitant]
     Active Substance: PREDNISONE
     Dosage: 20MG/DAY
     Dates: start: 2014, end: 2014
  6. PREDNISONE. [Concomitant]
     Active Substance: PREDNISONE
     Dosage: 10MG/DAY
     Route: 063
     Dates: start: 2014
  7. PREDNISONE. [Concomitant]
     Active Substance: PREDNISONE
     Dosage: 7.5MG/DAY
     Route: 064
     Dates: start: 2014, end: 2014

REACTIONS (3)
  - Premature baby [Unknown]
  - Foetal exposure during pregnancy [Unknown]
  - Exposure during breast feeding [Unknown]

NARRATIVE: CASE EVENT DATE: 2014
